FAERS Safety Report 5080791-X (Version None)
Quarter: 2006Q3

REPORT INFORMATION
  Report Type: 
  Country: None (occurrence: None)
  Receive Date: 20060809
  Receipt Date: 20060727
  Transmission Date: 20061208
  Serious: Yes (Life-Threatening, Hospitalization)
  Sender: FDA-Public Use
  Company Number: GXKR2006GR04324

PATIENT
  Age: 70 Year
  Sex: Male
  Weight: 77 kg

DRUGS (5)
  1. METFORMIN HCL [Suspect]
     Dosage: 850 MG, TID
  2. DICLOFENAC SODIUM [Suspect]
     Dosage: 25 MG, TID, ORAL
     Route: 048
  3. FUROSEMIDE [Suspect]
     Dosage: 40 MG, QD
  4. ISOSORBIDE MONONITRATE [Suspect]
     Dosage: 60 MG, QD
  5. QUINAPRIL [Suspect]
     Dosage: 20 MG, QD

REACTIONS (8)
  - AGITATION [None]
  - DRUG INTERACTION [None]
  - LACTIC ACIDOSIS [None]
  - LEUKOCYTOSIS [None]
  - MYALGIA [None]
  - RENAL FAILURE ACUTE [None]
  - RESPIRATORY DISTRESS [None]
  - TACHYCARDIA [None]
